FAERS Safety Report 6795011-5 (Version None)
Quarter: 2010Q2

REPORT INFORMATION
  Report Type: 
  Country: None (occurrence: None)
  Receive Date: 20100625
  Receipt Date: 20090716
  Transmission Date: 20101027
  Serious: Yes (Death, Hospitalization)
  Sender: FDA-Public Use
  Company Number: DE-ROCHE-584540

PATIENT
  Sex: Female
  Weight: 71 kg

DRUGS (9)
  1. CAPECITABINE [Suspect]
     Dosage: DOSE: 2 X 1250 MG/M
     Route: 048
     Dates: start: 20070514, end: 20070625
  2. CAPECITABINE [Suspect]
     Route: 048
     Dates: start: 20070806, end: 20070809
  3. LEVOTHYROXINE SODIUM [Concomitant]
     Indication: GOITRE
     Route: 048
     Dates: start: 19930101
  4. BONDRONAT [Concomitant]
     Route: 042
     Dates: start: 20060131
  5. ASPIRIN [Concomitant]
     Route: 048
     Dates: start: 20070627, end: 20070806
  6. CEFIXIM [Concomitant]
     Dosage: DOSE: 200 UNITS
  7. ENOXAPARIN [Concomitant]
     Dosage: DOSE: 30 UNITS
  8. MCP [Concomitant]
     Indication: PROPHYLAXIS
     Dosage: FREQ: 3
     Route: 048
     Dates: start: 20070822
  9. PANTOZOL [Concomitant]
     Indication: PROPHYLAXIS
     Dosage: FREQUENCY REPORTED AS 1
     Route: 048
     Dates: start: 20070806

REACTIONS (16)
  - ANAEMIA [None]
  - ASTHENIA [None]
  - BLOOD CREATININE INCREASED [None]
  - FATIGUE [None]
  - HEMIPARESIS [None]
  - NAUSEA [None]
  - NEOPLASM PROGRESSION [None]
  - PAIN [None]
  - PYELONEPHRITIS [None]
  - PYREXIA [None]
  - RENAL FAILURE [None]
  - SYNCOPE [None]
  - URINARY INCONTINENCE [None]
  - URINARY RETENTION [None]
  - UROSEPSIS [None]
  - VOMITING [None]
